FAERS Safety Report 10619258 (Version 1)
Quarter: 2014Q4

REPORT INFORMATION
  Report Type: Spontaneous
  Country: DE (occurrence: DE)
  Receive Date: 20141202
  Receipt Date: 20141202
  Transmission Date: 20150529
  Serious: Yes (Death, Congenital Anomaly, Other)
  Sender: FDA-Public Use
  Company Number: DE-TEVA-523684GER

PATIENT
  Age: 1 Day
  Sex: Female

DRUGS (2)
  1. METFORMIN [Suspect]
     Active Substance: METFORMIN HYDROCHLORIDE
     Indication: INSULIN RESISTANCE
     Dosage: 850 MILLIGRAM DAILY;
     Route: 064
  2. METFORMIN [Suspect]
     Active Substance: METFORMIN HYDROCHLORIDE
     Indication: POLYCYSTIC OVARIES

REACTIONS (10)
  - Hepatosplenomegaly neonatal [Unknown]
  - Foetal exposure during pregnancy [Unknown]
  - Cerebral haemorrhage [Unknown]
  - Coarctation of the aorta [Recovered/Resolved with Sequelae]
  - Pulmonary vein stenosis [Not Recovered/Not Resolved]
  - Dysmorphism [Not Recovered/Not Resolved]
  - Pulmonary hypertension [Fatal]
  - Small for dates baby [Unknown]
  - Death neonatal [Fatal]
  - Multiple cardiac defects [Recovered/Resolved with Sequelae]

NARRATIVE: CASE EVENT DATE: 20080306
